FAERS Safety Report 8968418 (Version 1)
Quarter: 2012Q4

REPORT INFORMATION
  Report Type: 
  Country: US (occurrence: US)
  Receive Date: 20121217
  Receipt Date: 20121217
  Transmission Date: 20130627
  Serious: No
  Sender: FDA-Public Use
  Company Number: US-VERTEX PHARMACEUTICALS INC.-2012-025927

PATIENT
  Age: 61 None
  Sex: Female
  Weight: 82 kg

DRUGS (3)
  1. INCIVEK [Suspect]
     Indication: HEPATITIS C
     Dosage: 750 mg, tid
     Route: 048
     Dates: start: 20121121
  2. COPEGUS [Suspect]
     Indication: HEPATITIS C
     Dosage: 400 mg am, 600 mg pm
     Route: 048
     Dates: start: 20121121
  3. PEGASYS [Suspect]
     Indication: HEPATITIS C
     Dosage: 180 ?g, qw
     Route: 058
     Dates: start: 20121121

REACTIONS (4)
  - Tremor [Recovered/Resolved]
  - Abdominal pain [Not Recovered/Not Resolved]
  - Anal pruritus [Not Recovered/Not Resolved]
  - Dysgeusia [Not Recovered/Not Resolved]
